FAERS Safety Report 6691832-8 (Version None)
Quarter: 2010Q2

REPORT INFORMATION
  Report Type: 
  Country: None (occurrence: None)
  Receive Date: 20100422
  Receipt Date: 20100416
  Transmission Date: 20101027
  Serious: Yes (Death)
  Sender: FDA-Public Use
  Company Number: US-ROCHE-607545

PATIENT
  Sex: Female
  Weight: 86.2 kg

DRUGS (22)
  1. BEVACIZUMAB [Suspect]
     Route: 042
     Dates: start: 20080305
  2. BLINDED ENZASTAURIN [Suspect]
     Indication: COLORECTAL CANCER METASTATIC
     Route: 065
     Dates: start: 20080305, end: 20080305
  3. BLINDED ENZASTAURIN [Suspect]
     Route: 065
     Dates: start: 20080306, end: 20090101
  4. FLUOROURACIL [Suspect]
     Indication: COLORECTAL CANCER METASTATIC
     Route: 042
     Dates: start: 20080305
  5. FLUOROURACIL [Suspect]
     Dosage: BOLUS OVER 46 HOURS.
     Route: 042
     Dates: start: 20080305
  6. LEUCOVORIN CALCIUM [Suspect]
     Indication: COLORECTAL CANCER METASTATIC
     Route: 042
  7. OXALIPLATIN [Concomitant]
     Dates: start: 20081231, end: 20081231
  8. NYSTATIN [Concomitant]
  9. LORAZEPAM [Concomitant]
  10. PROCHLORPERAZINE [Concomitant]
  11. ALOXI [Concomitant]
  12. DEXAMETHASONE [Concomitant]
  13. K-DUR [Concomitant]
  14. DETROL [Concomitant]
  15. COUMADIN [Concomitant]
  16. VITAMIN C [Concomitant]
  17. MIRTAZAPINE [Concomitant]
  18. IMODIUM [Concomitant]
  19. GLYBURIDE [Concomitant]
  20. FLUOXETINE [Concomitant]
  21. ARANESP [Concomitant]
     Dates: start: 20081105
  22. ZOFRAN [Concomitant]

REACTIONS (1)
  - ARRHYTHMIA [None]
